FAERS Safety Report 8088557-3 (Version None)
Quarter: 2012Q1

REPORT INFORMATION
  Report Type: 
  Country: None (occurrence: None)
  Receive Date: 20120128
  Receipt Date: 20110407
  Transmission Date: 20120608
  Serious: No
  Sender: FDA-Public Use
  Company Number: US-ABBOTT-11P-163-0717482-00

PATIENT
  Age: 22 Year
  Sex: Male

DRUGS (3)
  1. LIALDA [Concomitant]
     Indication: CROHN'S DISEASE
     Route: 048
  2. HUMIRA [Suspect]
     Indication: CROHN'S DISEASE
  3. ROWASA [Concomitant]
     Indication: CROHN'S DISEASE
     Dosage: 40 ML EVERY THIRD NIGHT

REACTIONS (2)
  - PAIN [None]
  - INJECTION SITE PAIN [None]
